FAERS Safety Report 9678946 (Version 5)
Quarter: 2014Q2

REPORT INFORMATION
  Report Type: Spontaneous
  Country: PT (occurrence: PT)
  Receive Date: 20131108
  Receipt Date: 20140408
  Transmission Date: 20141212
  Serious: Yes (Hospitalization)
  Sender: FDA-Public Use
  Company Number: PT-BRISTOL-MYERS SQUIBB COMPANY-19722578

PATIENT
  Age: 52 Year
  Sex: Male

DRUGS (21)
  1. REYATAZ [Suspect]
     Indication: HIV INFECTION
     Dosage: RESTART 18NOV
     Dates: start: 2003
  2. RISIDON [Suspect]
  3. TRUVADA [Suspect]
     Indication: HIV INFECTION
  4. RITONAVIR [Suspect]
     Indication: HIV INFECTION
     Dosage: RESTART 18NOV
  5. DIAMICRON [Suspect]
  6. RAMIPRIL + HCTZ [Concomitant]
     Dosage: 1DF=1-TAB?ALSO AS CONMED?ON EMPTY STOMACH
  7. AMLODIPINE [Concomitant]
     Dosage: 1DF=5-UNITS NOS 1CP ?ON EMPTY STOMACH
  8. DAONIL [Concomitant]
     Dosage: 1DF=1TAB?EMPTY STOMACH
  9. RISIDON [Concomitant]
     Dosage: 1DF=1000-UNITS NOS?RISIDON 850 ALSO?1 TAB AFTER DINNER
  10. THIAMINE [Concomitant]
     Dosage: 1DF=300-UNITS NOS
  11. CITALOPRAM [Concomitant]
     Dosage: 1DF=40-UNITS NOS
  12. MIRTAZAPINE [Concomitant]
     Dosage: 1DF=15-UNITS NOS
  13. QUETIAPINE [Concomitant]
     Dosage: 1DF=100-UNITS NOS?AT BEDTIME
  14. TIAPRIDAL [Concomitant]
  15. SUCRALFATE [Concomitant]
     Dosage: 1DF=1-UNITS NOS?AT MEALS
  16. KIVEXA [Concomitant]
     Dosage: 1DF=1-UNITS NOS?1 3PM/DOSE ADJUSTMENT
  17. MULTIVITAMIN [Concomitant]
  18. PRAVASTATIN SODIUM [Concomitant]
     Dosage: 1DF=10-UNITS NOS
  19. MIRTAZAPINE [Concomitant]
  20. ESCITALOPRAM [Concomitant]
  21. RAMIPRIL [Concomitant]

REACTIONS (3)
  - Acute prerenal failure [Recovered/Resolved]
  - Gastroenteritis [Recovered/Resolved]
  - Dehydration [Recovering/Resolving]
